FAERS Safety Report 10435600 (Version 1)
Quarter: 2014Q3

REPORT INFORMATION
  Report Type: Spontaneous
  Country: GB (occurrence: GB)
  Receive Date: 20140908
  Receipt Date: 20140908
  Transmission Date: 20150326
  Serious: Yes (Other)
  Sender: FDA-Public Use
  Company Number: GB-ROCHE-1458322

PATIENT
  Sex: Female

DRUGS (7)
  1. GOSERELIN [Concomitant]
     Active Substance: GOSERELIN
  2. DOCETAXEL [Concomitant]
     Active Substance: DOCETAXEL
  3. XELODA [Suspect]
     Active Substance: CAPECITABINE
     Indication: BREAST CANCER METASTATIC
     Route: 065
  4. METHOTREXATE [Concomitant]
     Active Substance: METHOTREXATE
  5. HERCEPTIN [Suspect]
     Active Substance: TRASTUZUMAB
     Indication: BREAST CANCER METASTATIC
     Route: 037
  6. LAPATINIB [Concomitant]
     Active Substance: LAPATINIB
  7. LETROZOLE. [Concomitant]
     Active Substance: LETROZOLE

REACTIONS (3)
  - Disease progression [Unknown]
  - Metastases to spine [Unknown]
  - Metastases to central nervous system [Unknown]
